FAERS Safety Report 7636334-7 (Version None)
Quarter: 2011Q3

REPORT INFORMATION
  Report Type: 
  Country: None (occurrence: None)
  Receive Date: 20110726
  Receipt Date: 20110721
  Transmission Date: 20111222
  Serious: Yes (Hospitalization)
  Sender: FDA-Public Use
  Company Number: US-GLAXOSMITHKLINE-A0929534A

PATIENT
  Age: 55 Year
  Sex: Male

DRUGS (7)
  1. PERCOCET [Concomitant]
  2. ADVAIR DISKUS 100/50 [Suspect]
     Indication: CHRONIC OBSTRUCTIVE PULMONARY DISEASE
     Dosage: 1PUFF TWICE PER DAY
     Route: 055
  3. DEXLANSOPRAZOLE [Concomitant]
  4. XANAX [Concomitant]
  5. ALBUTEROL SULFATE AUTOHALER [Concomitant]
  6. NEURONTIN [Concomitant]
  7. WELLBUTRIN [Concomitant]

REACTIONS (6)
  - GASTROINTESTINAL DISORDER [None]
  - BLOOD SODIUM DECREASED [None]
  - BLOOD POTASSIUM DECREASED [None]
  - PNEUMONIA [None]
  - RESPIRATORY FAILURE [None]
  - ELECTROLYTE IMBALANCE [None]
